FAERS Safety Report 21958786 (Version 2)
Quarter: 2023Q1

REPORT INFORMATION
  Report Type: Report from Study
  Country: EG (occurrence: EG)
  Receive Date: 20230206
  Receipt Date: 20230209
  Transmission Date: 20230418
  Serious: Yes (Other)
  Sender: FDA-Public Use
  Company Number: EG-002147023-NVSC2023EG023176

PATIENT
  Age: 65 Year
  Sex: Male

DRUGS (3)
  1. COSENTYX [Suspect]
     Active Substance: SECUKINUMAB
     Indication: Psoriasis
     Dosage: 2 DOSAGE FORM, Q2W (2 PREFILLED PENS EVERY 2 WEEKS FOR THE FIRST MONTH)
     Route: 058
     Dates: start: 20230119
  2. COSENTYX [Suspect]
     Active Substance: SECUKINUMAB
     Dosage: UNK (THEN HE SHOULD TAKE OTHER 4 PENS IN THE FOLLOWING WEEK THE DOSE REGIMEN IS BASED ON HCP DECISIO
     Route: 065
  3. LORATADINE [Concomitant]
     Active Substance: LORATADINE
     Indication: Hypersensitivity
     Dosage: UNK, PRN
     Route: 065

REACTIONS (6)
  - Psoriatic arthropathy [Unknown]
  - Psoriasis [Not Recovered/Not Resolved]
  - Bone pain [Not Recovered/Not Resolved]
  - Erythema [Not Recovered/Not Resolved]
  - Inflammation [Not Recovered/Not Resolved]
  - Nasopharyngitis [Unknown]

NARRATIVE: CASE EVENT DATE: 20230125
